FAERS Safety Report 7401437-9 (Version None)
Quarter: 2011Q2

REPORT INFORMATION
  Report Type: 
  Country: None (occurrence: None)
  Receive Date: 20110407
  Receipt Date: 20110325
  Transmission Date: 20111010
  Serious: Yes (Other)
  Sender: FDA-Public Use
  Company Number: GB-MYLANLABS-2011S1006459

PATIENT
  Age: 75 Year
  Sex: Female
  Weight: 35 kg

DRUGS (8)
  1. ATROVENT [Concomitant]
     Indication: EMPHYSEMA
     Route: 055
     Dates: start: 20110120
  2. ALBUTEROL SULFATE AUTOHALER [Concomitant]
     Indication: PRODUCT USED FOR UNKNOWN INDICATION
     Route: 055
     Dates: start: 20110226, end: 20110303
  3. CYCLIZINE [Concomitant]
     Indication: NAUSEA
     Route: 048
     Dates: start: 20110301, end: 20110303
  4. ENOXAPARIN [Concomitant]
     Indication: THROMBOSIS PROPHYLAXIS
     Route: 058
     Dates: start: 20110225
  5. LACTULOSE [Concomitant]
     Indication: CONSTIPATION
     Route: 048
     Dates: start: 20110227
  6. DOXYCYCLINE [Suspect]
     Indication: LOWER RESPIRATORY TRACT INFECTION
     Route: 048
     Dates: start: 20110227, end: 20110303
  7. PARACETAMOL [Concomitant]
     Indication: PAIN
     Route: 048
     Dates: start: 20110228, end: 20110228
  8. SERETIDE [Concomitant]
     Indication: EMPHYSEMA
     Route: 055

REACTIONS (1)
  - LIVER FUNCTION TEST ABNORMAL [None]
